FAERS Safety Report 17309677 (Version 2)
Quarter: 2020Q1

REPORT INFORMATION
  Report Type: Report from Study
  Country: US (occurrence: US)
  Receive Date: 20200123
  Receipt Date: 20200213
  Transmission Date: 20200409
  Serious: Yes (Hospitalization)
  Sender: FDA-Public Use
  Company Number: US-ACTELION-A-US2017-150894

PATIENT
  Sex: Female
  Weight: 56.24 kg

DRUGS (7)
  1. VELETRI [Suspect]
     Active Substance: EPOPROSTENOL
     Dosage: 16.75 NG/KG, PER MIN
     Route: 042
  2. VELETRI [Suspect]
     Active Substance: EPOPROSTENOL
     Dosage: 24 NG/KG, PER MIN
     Route: 042
  3. VELETRI [Suspect]
     Active Substance: EPOPROSTENOL
     Indication: PULMONARY HYPERTENSION
     Dosage: 14 NG/KG, PER MIN
     Route: 042
  4. VELETRI [Suspect]
     Active Substance: EPOPROSTENOL
     Dosage: 18 NG/KG, PER MIN
     Route: 042
  5. VELETRI [Suspect]
     Active Substance: EPOPROSTENOL
     Dosage: 16.34 NG/KG, PER MIN
     Route: 042
  6. ADCIRCA [Concomitant]
     Active Substance: TADALAFIL
  7. VELETRI [Suspect]
     Active Substance: EPOPROSTENOL
     Dosage: 24.3 NG/KG, PER MIN
     Route: 042

REACTIONS (28)
  - Headache [Unknown]
  - Flushing [Unknown]
  - Pain in jaw [Unknown]
  - Diverticulitis [Unknown]
  - Vomiting [Recovered/Resolved]
  - Sinusitis [Unknown]
  - Pain in extremity [Unknown]
  - Catheter site infection [Unknown]
  - Decreased appetite [Unknown]
  - Diarrhoea [Unknown]
  - Catheter site swelling [Unknown]
  - Bronchitis [Unknown]
  - Hypotension [Unknown]
  - Constipation [Unknown]
  - Urinary tract infection [Recovered/Resolved]
  - Dyspepsia [Unknown]
  - Nausea [Unknown]
  - Catheter site discharge [Unknown]
  - Catheter site erythema [Unknown]
  - Alopecia [Unknown]
  - Dyspnoea exertional [Not Recovered/Not Resolved]
  - Dysgeusia [Unknown]
  - Weight decreased [Unknown]
  - Catheter site vesicles [Unknown]
  - Abdominal pain [Unknown]
  - Malaise [Unknown]
  - Fatigue [Unknown]
  - Catheter site pruritus [Unknown]
